FAERS Safety Report 21682239 (Version 2)
Quarter: 2023Q1

REPORT INFORMATION
  Report Type: Spontaneous
  Country: JP (occurrence: JP)
  Receive Date: 20221205
  Receipt Date: 20230126
  Transmission Date: 20230417
  Serious: Yes (Other)
  Sender: FDA-Public Use
  Company Number: JP-GILEAD-2022-0606893

PATIENT
  Age: 5 Decade
  Sex: Male

DRUGS (10)
  1. BIKTARVY [Suspect]
     Active Substance: BICTEGRAVIR SODIUM\EMTRICITABINE\TENOFOVIR ALAFENAMIDE FUMARATE
     Indication: HIV infection
     Dosage: UNK
     Route: 065
  2. FOSCAVIR [Suspect]
     Active Substance: FOSCARNET SODIUM
     Indication: Cytomegalovirus enterocolitis
     Dosage: UNK
     Route: 050
  3. FOSCAVIR [Suspect]
     Active Substance: FOSCARNET SODIUM
     Indication: Encephalitis cytomegalovirus
     Dosage: UNK
     Route: 065
  4. FOSCAVIR [Suspect]
     Active Substance: FOSCARNET SODIUM
     Indication: Cytomegalovirus chorioretinitis
  5. GANCICLOVIR [Concomitant]
     Active Substance: GANCICLOVIR
     Indication: Cytomegalovirus enterocolitis
     Dosage: UNK
  6. GANCICLOVIR [Concomitant]
     Active Substance: GANCICLOVIR
     Indication: Encephalitis cytomegalovirus
     Dosage: UNK
     Route: 031
  7. GANCICLOVIR [Concomitant]
     Active Substance: GANCICLOVIR
     Indication: Cytomegalovirus chorioretinitis
  8. VALGANCICLOVIR HYDROCHLORIDE [Concomitant]
     Active Substance: VALGANCICLOVIR HYDROCHLORIDE
     Indication: Cytomegalovirus enterocolitis
     Dosage: UNK
     Route: 048
  9. VALGANCICLOVIR HYDROCHLORIDE [Concomitant]
     Active Substance: VALGANCICLOVIR HYDROCHLORIDE
     Indication: Encephalitis cytomegalovirus
  10. VALGANCICLOVIR HYDROCHLORIDE [Concomitant]
     Active Substance: VALGANCICLOVIR HYDROCHLORIDE
     Indication: Cytomegalovirus chorioretinitis

REACTIONS (1)
  - Nephropathy toxic [Unknown]
